FAERS Safety Report 8615392-7 (Version None)
Quarter: 2012Q3

REPORT INFORMATION
  Report Type: 
  Country: None (occurrence: None)
  Receive Date: 20120823
  Receipt Date: 20120820
  Transmission Date: 20120928
  Serious: Yes (Death, Other)
  Sender: FDA-Public Use
  Company Number: US-PFIZER INC-2012204715

PATIENT
  Sex: Male

DRUGS (3)
  1. LYRICA [Suspect]
     Indication: NEURALGIA
     Dosage: UNK
  2. NEURONTIN [Suspect]
     Indication: NEURALGIA
     Dosage: UNK
  3. NEURONTIN [Suspect]
     Indication: BURNING SENSATION

REACTIONS (4)
  - DRUG INEFFECTIVE [None]
  - DEATH [None]
  - PNEUMONIA ASPIRATION [None]
  - DIZZINESS [None]
